FAERS Safety Report 5020990-6 (Version None)
Quarter: 2006Q2

REPORT INFORMATION
  Report Type: 
  Country: None (occurrence: None)
  Receive Date: 20060608
  Receipt Date: 20060529
  Transmission Date: 20061013
  Serious: Yes (Other)
  Sender: FDA-Public Use
  Company Number: PHBS2006JP08030

PATIENT
  Age: 40 Year
  Sex: Female
  Weight: 61.2 kg

DRUGS (2)
  1. DOPAMIN [Concomitant]
  2. BROMOCRIPTINE MESYLATE [Suspect]
     Dosage: 1 MG, QW

REACTIONS (3)
  - DRUG EXPOSURE DURING PREGNANCY [None]
  - NORMAL NEWBORN [None]
  - PITUITARY TUMOUR REMOVAL [None]
